FAERS Safety Report 12270911 (Version 1)
Quarter: 2016Q2

REPORT INFORMATION
  Report Type: Spontaneous
  Country: SE (occurrence: SE)
  Receive Date: 20160415
  Receipt Date: 20160415
  Transmission Date: 20160815
  Serious: Yes (Other)
  Sender: FDA-Public Use
  Company Number: SE-PFIZER INC-2014116092

PATIENT
  Age: 38 Year
  Sex: Female

DRUGS (6)
  1. TAVEGYL [Concomitant]
     Active Substance: CLEMASTINE FUMARATE
  2. KALCIPOS-D [Concomitant]
     Active Substance: CALCIUM CARBONATE\CHOLECALCIFEROL
  3. OMEPRAZOLE. [Concomitant]
     Active Substance: OMEPRAZOLE
  4. SALAZOPYRIN EN [Suspect]
     Active Substance: SULFASALAZINE
     Indication: RHEUMATOID ARTHRITIS
     Dosage: 1 G, 2X/DAY
     Dates: start: 20140311, end: 20140403
  5. PREDNISOLONE. [Concomitant]
     Active Substance: PREDNISOLONE
  6. ORUDIS [Concomitant]
     Active Substance: KETOPROFEN

REACTIONS (6)
  - Rash [Unknown]
  - Chills [Unknown]
  - Rash [Unknown]
  - Eye swelling [Unknown]
  - Rash pruritic [Unknown]
  - Pyrexia [Unknown]

NARRATIVE: CASE EVENT DATE: 201404
